FAERS Safety Report 14749741 (Version 2)
Quarter: 2018Q2

REPORT INFORMATION
  Report Type: Report from Study
  Country: JP (occurrence: JP)
  Receive Date: 20180412
  Receipt Date: 20180430
  Transmission Date: 20180711
  Serious: Yes (Other)
  Sender: FDA-Public Use
  Company Number: JP-BRISTOL-MYERS SQUIBB COMPANY-BMS-2018-032725

PATIENT
  Age: 59 Year
  Sex: Female

DRUGS (2)
  1. NIVOLUMAB [Suspect]
     Active Substance: NIVOLUMAB
     Indication: GASTRIC CANCER
     Dosage: 3 MG/KG, UNK
     Route: 041
     Dates: start: 20171227
  2. CPT-11 [Suspect]
     Active Substance: IRINOTECAN
     Indication: GASTRIC CANCER
     Route: 065

REACTIONS (2)
  - Upper gastrointestinal haemorrhage [Recovering/Resolving]
  - Gastrointestinal fungal infection [Unknown]

NARRATIVE: CASE EVENT DATE: 20180331
